FAERS Safety Report 7932901-1 (Version None)
Quarter: 2011Q4

REPORT INFORMATION
  Report Type: 
  Country: None (occurrence: None)
  Receive Date: 20111122
  Receipt Date: 20111117
  Transmission Date: 20120403
  Serious: Yes (Death)
  Sender: FDA-Public Use
  Company Number: US-ASTELLAS-2011US007706

PATIENT

DRUGS (7)
  1. GROWTH FACTOR [Concomitant]
     Indication: PRODUCT USED FOR UNKNOWN INDICATION
     Dosage: UNK
     Route: 065
  2. METHOTREXATE [Concomitant]
     Indication: EXTRANODAL NK/T-CELL LYMPHOMA, NASAL TYPE
     Dosage: 2000 MG/M2, UNKNOWN/D
     Route: 065
  3. IFOSFAMIDE [Concomitant]
     Indication: EXTRANODAL NK/T-CELL LYMPHOMA, NASAL TYPE
     Dosage: 1500 MG/M2, UNKNOWN/D
     Route: 065
  4. PEGYLATED-L-ASPARAGINASE [Concomitant]
     Indication: EXTRANODAL NK/T-CELL LYMPHOMA, NASAL TYPE
     Dosage: 2500 IU/M2, UNKNOWN/D
     Route: 042
  5. DEXAMETHASONE [Concomitant]
     Indication: EXTRANODAL NK/T-CELL LYMPHOMA, NASAL TYPE
     Dosage: 40 MG, UNKNOWN/D
     Route: 042
  6. TACROLIMUS [Suspect]
     Indication: PRODUCT USED FOR UNKNOWN INDICATION
     Dosage: UNK
     Route: 065
  7. ETOPOSIDE [Concomitant]
     Indication: EXTRANODAL NK/T-CELL LYMPHOMA, NASAL TYPE
     Dosage: 100 MG/M2, UNKNOWN/D
     Route: 065

REACTIONS (1)
  - THROMBOTIC THROMBOCYTOPENIC PURPURA [None]
